FAERS Safety Report 26114498 (Version 1)
Quarter: 2025Q4

REPORT INFORMATION
  Report Type: Report from Study
  Country: MX (occurrence: MX)
  Receive Date: 20251202
  Receipt Date: 20251202
  Transmission Date: 20260118
  Serious: Yes (Other)
  Sender: ABBVIE
  Company Number: MX-ABBVIE-6571045

PATIENT
  Age: 50 Year
  Sex: Female
  Weight: 67 kg

DRUGS (1)
  1. RINVOQ [Suspect]
     Active Substance: UPADACITINIB
     Indication: Rheumatoid arthritis
     Dosage: DOSE STRENGTH: 15 MG X 28 TABLETS?LAST ADMIN DATE: 2025?STOPPED TAKING RINVOQ 3 MONTHS AGO, IN AU...
     Route: 048
     Dates: start: 20250228

REACTIONS (1)
  - Idiopathic pulmonary fibrosis [Recovering/Resolving]

NARRATIVE: CASE EVENT DATE: 20250901
